FAERS Safety Report 5794978-1 (Version None)
Quarter: 2008Q2

REPORT INFORMATION
  Report Type: 
  Country: None (occurrence: None)
  Receive Date: 20080626
  Receipt Date: 20080526
  Transmission Date: 20081010
  Serious: Yes (Other)
  Sender: FDA-Public Use
  Company Number: 920#8#2008-00009

PATIENT
  Age: 67 Year
  Sex: Male

DRUGS (3)
  1. NIFEDIPINE [Suspect]
     Indication: DRUG USE FOR UNKNOWN INDICATION
  2. GLIBENCLAMIDE [Concomitant]
  3. ENALAPRIL MALEATE [Concomitant]

REACTIONS (2)
  - DYSPHASIA [None]
  - OESOPHAGEAL DISORDER [None]
